FAERS Safety Report 9521529 (Version 1)
Quarter: 2013Q3

REPORT INFORMATION
  Report Type: Report from Study
  Country: CA (occurrence: CA)
  Receive Date: 20130913
  Receipt Date: 20130913
  Transmission Date: 20140515
  Serious: Yes (Other)
  Sender: FDA-Public Use
  Company Number: CA-JNJFOC-20130904884

PATIENT
  Age: 65 Year
  Sex: Male
  Weight: 119 kg

DRUGS (7)
  1. REMICADE [Suspect]
     Indication: COLITIS ULCERATIVE
     Route: 042
     Dates: start: 201112
  2. COVERSYL [Concomitant]
     Route: 065
  3. SERTRALINE [Concomitant]
     Route: 065
  4. DIAZEPAM [Concomitant]
     Route: 065
  5. ADVAIR [Concomitant]
     Route: 065
  6. HCTZ [Concomitant]
     Route: 065
  7. SALBUTAMOL [Concomitant]
     Route: 065

REACTIONS (1)
  - Chest pain [Recovered/Resolved]
